FAERS Safety Report 13026972 (Version 1)
Quarter: 2016Q4

REPORT INFORMATION
  Report Type: Spontaneous
  Country: FR (occurrence: FR)
  Receive Date: 20161214
  Receipt Date: 20161214
  Transmission Date: 20170207
  Serious: Yes (Hospitalization)
  Sender: FDA-Public Use
  Company Number: FR-PFIZER INC-2016564971

PATIENT
  Age: 63 Year
  Sex: Male
  Weight: 62 kg

DRUGS (31)
  1. GEMZAR [Suspect]
     Active Substance: GEMCITABINE HYDROCHLORIDE
     Dosage: 500 MG/M2, CYCLIC (4TH COURSE)
     Route: 041
     Dates: start: 20160914
  2. PREDNISONE. [Concomitant]
     Active Substance: PREDNISONE
     Dosage: 40 MG/M2, CYCLIC (2ND COURSE)
     Route: 042
     Dates: start: 20160711, end: 20160711
  3. PLAVIX [Concomitant]
     Active Substance: CLOPIDOGREL BISULFATE
     Dosage: 75 MG, 1X/DAY
     Route: 048
  4. LANTUS [Concomitant]
     Active Substance: INSULIN GLARGINE
     Dosage: 18 IU, 1X/DAY
  5. TAHOR [Concomitant]
     Active Substance: ATORVASTATIN CALCIUM
     Dosage: 40 MG, 1X/DAY
     Route: 048
  6. PERINDOPRIL ARGININE [Concomitant]
     Active Substance: PERINDOPRIL ARGININE
     Dosage: 2.5 MG, 1X/DAY
     Route: 048
  7. NOVORAPID [Concomitant]
     Active Substance: INSULIN ASPART
     Dosage: 38 IU, DAILY (18 IU IN THE MORNING, 10 IU AT NOON, AND 10 IU IN THE EVENING)
  8. DOXORUBICIN HCL [Suspect]
     Active Substance: DOXORUBICIN HYDROCHLORIDE
     Dosage: UNK UNK, CYCLIC (6TH COURSE)
     Route: 041
     Dates: start: 20161026
  9. VELBE [Suspect]
     Active Substance: VINBLASTINE SULFATE
     Dosage: UNK UNK, CYCLIC (5TH COURSE)
     Route: 041
     Dates: start: 20161005
  10. VELBE [Suspect]
     Active Substance: VINBLASTINE SULFATE
     Dosage: UNK UNK, CYCLIC (6TH COURSE)
     Route: 041
     Dates: start: 20161026
  11. INEXIUM /01479302/ [Concomitant]
     Active Substance: ESOMEPRAZOLE MAGNESIUM
     Dosage: 40 MG, 1X/DAY
     Route: 048
  12. DOXORUBICIN HCL [Suspect]
     Active Substance: DOXORUBICIN HYDROCHLORIDE
     Indication: HODGKIN^S DISEASE
     Dosage: 50 MG/M2, CYCLIC (1ST COURSE)
     Route: 041
     Dates: start: 20160620, end: 20160620
  13. DOXORUBICIN HCL [Suspect]
     Active Substance: DOXORUBICIN HYDROCHLORIDE
     Dosage: HALF DOSE, CYCLIC (3RD COURSE)
     Route: 041
     Dates: start: 20160824
  14. DOXORUBICIN HCL [Suspect]
     Active Substance: DOXORUBICIN HYDROCHLORIDE
     Dosage: 25 MG/M2, CYCLIC (4TH COURSE)
     Route: 041
     Dates: start: 20160914
  15. VELBE [Suspect]
     Active Substance: VINBLASTINE SULFATE
     Dosage: HALF DOSE, CYCLIC (3RD COURSE)
     Route: 041
     Dates: start: 20160824
  16. LYRICA [Concomitant]
     Active Substance: PREGABALIN
     Dosage: 75 MG, 2X/DAY
     Route: 048
  17. DOXORUBICIN HCL [Suspect]
     Active Substance: DOXORUBICIN HYDROCHLORIDE
     Dosage: 40 MG/M2, CYCLIC (2ND COURSE)
     Route: 041
     Dates: start: 20160711, end: 20160711
  18. GEMZAR [Suspect]
     Active Substance: GEMCITABINE HYDROCHLORIDE
     Indication: HODGKIN^S DISEASE
     Dosage: 1000 MG/M2, CYCLIC (1ST COURSE)
     Route: 041
     Dates: start: 20160620, end: 20160620
  19. GEMZAR [Suspect]
     Active Substance: GEMCITABINE HYDROCHLORIDE
     Dosage: UNK UNK, CYCLIC (6TH COURSE)
     Route: 041
     Dates: start: 20161026
  20. PREDNISONE. [Concomitant]
     Active Substance: PREDNISONE
     Indication: HODGKIN^S DISEASE
     Dosage: 40 MG/M2, CYCLIC (1ST COURSE)
     Route: 042
     Dates: start: 20160620, end: 20160624
  21. PREDNISONE. [Concomitant]
     Active Substance: PREDNISONE
     Dosage: HALF DOSE, CYCLIC (3RD COURSE)
     Route: 042
     Dates: start: 20160824
  22. PREDNISONE. [Concomitant]
     Active Substance: PREDNISONE
     Dosage: UNK UNK, CYCLIC (6TH COURSE)
     Route: 042
     Dates: start: 20161026
  23. CORTANCYL [Concomitant]
     Active Substance: PREDNISONE
     Indication: HODGKIN^S DISEASE
     Dosage: 60 MG, CYCLIC
     Dates: start: 20160914, end: 20160918
  24. GEMZAR [Suspect]
     Active Substance: GEMCITABINE HYDROCHLORIDE
     Dosage: HALF DOSE, CYCLIC (3RD COURSE)
     Route: 041
     Dates: start: 20160824
  25. PREDNISONE. [Concomitant]
     Active Substance: PREDNISONE
     Dosage: UNK UNK, CYCLIC (5TH COURSE)
     Route: 042
     Dates: start: 20161005
  26. VELBE [Suspect]
     Active Substance: VINBLASTINE SULFATE
     Indication: HODGKIN^S DISEASE
     Dosage: 6 MG/M2, CYCLIC (1ST COURSE)
     Route: 041
     Dates: start: 20160620, end: 20160620
  27. GEMZAR [Suspect]
     Active Substance: GEMCITABINE HYDROCHLORIDE
     Dosage: UNK UNK, CYCLIC (5TH COURSE)
     Route: 041
     Dates: start: 20161005
  28. DOXORUBICIN HCL [Suspect]
     Active Substance: DOXORUBICIN HYDROCHLORIDE
     Dosage: UNK UNK, CYCLIC (5TH COURSE)
     Route: 041
     Dates: start: 20161005
  29. VELBE [Suspect]
     Active Substance: VINBLASTINE SULFATE
     Dosage: 6 MG/M2, CYCLIC (2ND COURSE)
     Route: 041
     Dates: start: 20160711, end: 20160711
  30. VELBE [Suspect]
     Active Substance: VINBLASTINE SULFATE
     Dosage: 6 MG/M2, CYCLIC (4TH COURSE)
     Route: 041
     Dates: start: 20160914
  31. GEMZAR [Suspect]
     Active Substance: GEMCITABINE HYDROCHLORIDE
     Dosage: 800 MG/M2, CYCLIC (2ND COURSE)
     Route: 041
     Dates: start: 20160711, end: 20160711

REACTIONS (7)
  - Abdominal pain [Unknown]
  - Mucosal inflammation [Unknown]
  - Chills [Unknown]
  - Constipation [Unknown]
  - Febrile bone marrow aplasia [Recovered/Resolved]
  - Oral candidiasis [Unknown]
  - Mouth ulceration [Unknown]

NARRATIVE: CASE EVENT DATE: 20160702
